FAERS Safety Report 10389989 (Version 3)
Quarter: 2014Q3

REPORT INFORMATION
  Report Type: Spontaneous
  Country: None (occurrence: None)
  Receive Date: 20140813
  Receipt Date: 20140908
  Transmission Date: 20150326
  Serious: Yes (Death, Hospitalization)
  Sender: FDA-Public Use
  Company Number: 2013US003534

PATIENT
  Age: 62 Year
  Sex: Female

DRUGS (1)
  1. ICLUSIG [Suspect]
     Active Substance: PONATINIB
     Indication: CHRONIC MYELOID LEUKAEMIA
     Route: 048
     Dates: start: 20130525, end: 20130717

REACTIONS (13)
  - Thrombocytopenia [None]
  - International normalised ratio increased [None]
  - Cardio-respiratory arrest [None]
  - Brain natriuretic peptide increased [None]
  - Bacteraemia [None]
  - Pleural effusion [None]
  - Febrile neutropenia [None]
  - Pneumonia [None]
  - Anaemia [None]
  - Death [None]
  - Blast crisis in myelogenous leukaemia [None]
  - Prothrombin time prolonged [None]
  - Blood alkaline phosphatase increased [None]

NARRATIVE: CASE EVENT DATE: 20130727
